FAERS Safety Report 20126019 (Version 3)
Quarter: 2022Q1

REPORT INFORMATION
  Report Type: Spontaneous
  Country: US (occurrence: US)
  Receive Date: 20211129
  Receipt Date: 20220112
  Transmission Date: 20220423
  Serious: No
  Sender: FDA-Public Use
  Company Number: US-LUPIN PHARMACEUTICALS INC.-2021-23238

PATIENT
  Sex: Female

DRUGS (1)
  1. ALBUTEROL SULFATE [Suspect]
     Active Substance: ALBUTEROL SULFATE
     Indication: COVID-19 pneumonia
     Dosage: 2 DOSAGE FORM, PRN

REACTIONS (3)
  - Device breakage [Unknown]
  - Device delivery system issue [Unknown]
  - No adverse event [Unknown]
